FAERS Safety Report 6639781-5 (Version None)
Quarter: 2010Q1

REPORT INFORMATION
  Report Type: 
  Country: None (occurrence: None)
  Receive Date: 20100318
  Receipt Date: 20100303
  Transmission Date: 20100710
  Serious: Yes (Hospitalization)
  Sender: FDA-Public Use
  Company Number: GB-BRISTOL-MYERS SQUIBB COMPANY-14927453

PATIENT
  Age: 75 Year
  Sex: Male

DRUGS (6)
  1. BLINDED: SAXAGLIPTIN [Suspect]
     Indication: TYPE 2 DIABETES MELLITUS
     Route: 048
  2. BLINDED: PLACEBO [Suspect]
     Indication: TYPE 2 DIABETES MELLITUS
     Route: 048
  3. METFORMIN HCL [Suspect]
     Indication: TYPE 2 DIABETES MELLITUS
     Dates: start: 20020523
  4. NOVOMIX [Suspect]
     Indication: TYPE 2 DIABETES MELLITUS
     Dates: start: 20051129
  5. SIMVASTATIN [Concomitant]
     Dates: start: 20001008
  6. ATENOLOL [Concomitant]
     Dates: start: 20001008

REACTIONS (1)
  - ANAEMIA [None]
